FAERS Safety Report 5724947-9 (Version None)
Quarter: 2008Q2

REPORT INFORMATION
  Report Type: 
  Country: None (occurrence: None)
  Receive Date: 20080430
  Receipt Date: 20080430
  Transmission Date: 20081010
  Serious: No
  Sender: FDA-Public Use
  Company Number: None

PATIENT
  Sex: Female
  Weight: 61.6892 kg

DRUGS (2)
  1. RILUTEK [Suspect]
     Indication: AMYOTROPHIC LATERAL SCLEROSIS
     Dosage: 50 MG TWICE DAILY PO
     Route: 048
     Dates: start: 20080328, end: 20080421
  2. PREMPRO [Concomitant]

REACTIONS (1)
  - ASTHENIA [None]
